FAERS Safety Report 6290845-8 (Version None)
Quarter: 2009Q3

REPORT INFORMATION
  Report Type: 
  Country: None (occurrence: None)
  Receive Date: 20090730
  Receipt Date: 20070918
  Transmission Date: 20100115
  Serious: Yes (Other)
  Sender: FDA-Public Use
  Company Number: US-ASTRAZENECA-2006UW26297

PATIENT
  Age: 550 Month
  Sex: Male
  Weight: 125.6 kg

DRUGS (27)
  1. SEROQUEL [Suspect]
     Indication: DEPRESSION
     Route: 048
     Dates: start: 20010201, end: 20070401
  2. SEROQUEL [Suspect]
     Indication: BIPOLAR DISORDER
     Route: 048
     Dates: start: 20010201, end: 20070401
  3. SEROQUEL [Suspect]
     Indication: ABNORMAL BEHAVIOUR
     Route: 048
     Dates: start: 20010201, end: 20070401
  4. SEROQUEL [Suspect]
     Indication: MENTAL DISORDER
     Route: 048
     Dates: start: 20010201, end: 20070401
  5. SEROQUEL [Suspect]
     Route: 048
     Dates: start: 20040122
  6. SEROQUEL [Suspect]
     Route: 048
     Dates: start: 20040122
  7. SEROQUEL [Suspect]
     Route: 048
     Dates: start: 20040122
  8. SEROQUEL [Suspect]
     Route: 048
     Dates: start: 20040122
  9. SEROQUEL [Suspect]
     Route: 048
     Dates: start: 20051007
  10. SEROQUEL [Suspect]
     Route: 048
     Dates: start: 20051007
  11. SEROQUEL [Suspect]
     Route: 048
     Dates: start: 20051007
  12. SEROQUEL [Suspect]
     Route: 048
     Dates: start: 20051007
  13. SEROQUEL [Suspect]
     Dosage: 300 MG, 7 TABLETS AT BEDTIME
     Route: 048
     Dates: start: 20070221
  14. SEROQUEL [Suspect]
     Dosage: 300 MG, 7 TABLETS AT BEDTIME
     Route: 048
     Dates: start: 20070221
  15. SEROQUEL [Suspect]
     Dosage: 300 MG, 7 TABLETS AT BEDTIME
     Route: 048
     Dates: start: 20070221
  16. SEROQUEL [Suspect]
     Dosage: 300 MG, 7 TABLETS AT BEDTIME
     Route: 048
     Dates: start: 20070221
  17. ABILIFY [Concomitant]
  18. GEODON [Concomitant]
  19. ZYPREXA [Concomitant]
  20. PRAVACHOL [Concomitant]
     Indication: MENTAL DISORDER
     Dates: start: 20050610
  21. PLETAL [Concomitant]
     Dosage: 100 MG - 200 MG
     Dates: start: 20040202
  22. XANAX [Concomitant]
     Indication: ABNORMAL BEHAVIOUR
     Dates: start: 20051007
  23. METHADONE HCL [Concomitant]
     Indication: PAIN
     Dosage: 40 MG TO 60 MG
     Dates: start: 20051007
  24. HALDOL [Concomitant]
     Dates: start: 20070828
  25. DEPAKOTE [Concomitant]
     Indication: MENTAL DISORDER
     Dosage: 500 MG, 3 TABLETS IN THE MORNING AND 3 TABLETS IN THE EVENING
     Dates: start: 20040202
  26. DEPAKOTE [Concomitant]
     Dosage: 500 MG TWO A.M. AND THREE AT BEDTIME
     Dates: start: 20070221
  27. ASPIRIN [Concomitant]
     Dosage: EVERY DAY
     Dates: start: 20050610

REACTIONS (5)
  - DIABETES MELLITUS [None]
  - DIABETES MELLITUS INADEQUATE CONTROL [None]
  - DIABETIC COMPLICATION [None]
  - DIABETIC NEUROPATHY [None]
  - TYPE 1 DIABETES MELLITUS [None]
